FAERS Safety Report 20543878 (Version 1)
Quarter: 2022Q1

REPORT INFORMATION
  Report Type: Report from Study
  Country: GB (occurrence: GB)
  Receive Date: 20220303
  Receipt Date: 20220303
  Transmission Date: 20220423
  Serious: Yes (Disabling, Other)
  Sender: FDA-Public Use
  Company Number: GB-NOVOPROD-882757

PATIENT
  Age: 62 Year
  Sex: Male
  Weight: 81 kg

DRUGS (5)
  1. SEMAGLUTIDE [Suspect]
     Active Substance: SEMAGLUTIDE
     Indication: Type 2 diabetes mellitus
     Dosage: 14.0,MG,ONCE PER DAY
     Route: 048
     Dates: start: 20200226
  2. TRESIBA [Concomitant]
     Active Substance: INSULIN DEGLUDEC
     Dosage: 8UNITS/DAY
     Dates: start: 20220222
  3. TRESIBA [Concomitant]
     Active Substance: INSULIN DEGLUDEC
     Dosage: 22 UNITS/DAY
  4. NOVORAPID [Concomitant]
     Active Substance: INSULIN ASPART
     Dosage: 26UNITS/DAY
  5. NOVORAPID [Concomitant]
     Active Substance: INSULIN ASPART
     Dosage: 26UNITS/DAY
     Dates: start: 20220222

REACTIONS (1)
  - Vitreous haemorrhage [Recovering/Resolving]

NARRATIVE: CASE EVENT DATE: 20211202
